FAERS Safety Report 7498588-X (Version None)
Quarter: 2011Q2

REPORT INFORMATION
  Report Type: 
  Country: None (occurrence: None)
  Receive Date: 20110524
  Receipt Date: 20110425
  Transmission Date: 20111010
  Serious: Yes (Hospitalization)
  Sender: FDA-Public Use
  Company Number: US-BAYER-201040641NA

PATIENT
  Age: 30 Year
  Sex: Female
  Weight: 65.76 kg

DRUGS (8)
  1. DROSPIRENONE AND ETHINYL ESTRADIOL [Suspect]
     Indication: ACNE
     Route: 048
  2. IBUPROFEN (ADVIL) [Concomitant]
  3. MIDRIN [Concomitant]
  4. NORTRIPTYLINE HYDROCHLORIDE [Concomitant]
  5. YAZ [Suspect]
     Indication: ACNE
     Dosage: UNK
     Route: 048
  6. ANTI-DIARRHEAL [Concomitant]
  7. NSAID'S [Concomitant]
  8. YASMIN [Suspect]
     Indication: ACNE
     Dosage: UNK
     Route: 048
     Dates: start: 20010101, end: 20020101

REACTIONS (2)
  - GALLBLADDER NON-FUNCTIONING [None]
  - PAIN [None]
